FAERS Safety Report 6548737-2 (Version None)
Quarter: 2010Q1

REPORT INFORMATION
  Report Type: 
  Country: None (occurrence: None)
  Receive Date: 20100124
  Receipt Date: 20091102
  Transmission Date: 20100710
  Serious: No
  Sender: FDA-Public Use
  Company Number: US-ALLERGAN-0914924US

PATIENT
  Age: 66 Year
  Sex: Female

DRUGS (5)
  1. RESTASIS [Suspect]
     Indication: DRY EYE
     Dosage: 1 GTT, BID
     Route: 047
     Dates: start: 20090601
  2. ATENOLOL [Concomitant]
     Indication: ATRIAL FIBRILLATION
  3. COUMADIN [Concomitant]
     Indication: ATRIAL FIBRILLATION
  4. CARTIA XT [Concomitant]
     Indication: ATRIAL FIBRILLATION
     Dosage: 120 MG, QD
  5. CLARITIN [Concomitant]
     Indication: SEASONAL ALLERGY

REACTIONS (2)
  - EYE IRRITATION [None]
  - VISION BLURRED [None]
